FAERS Safety Report 17332519 (Version 1)
Quarter: 2020Q1

REPORT INFORMATION
  Report Type: Report from Study
  Country: US (occurrence: US)
  Receive Date: 20200127
  Receipt Date: 20200127
  Transmission Date: 20200409
  Serious: No
  Sender: FDA-Public Use
  Company Number: NVSC2020US020234

PATIENT
  Sex: Female

DRUGS (2)
  1. ZORTRESS [Suspect]
     Active Substance: EVEROLIMUS
     Indication: LIVER TRANSPLANT
     Dosage: 0.5 MG (1 MG IN THE A.M. AND 1.5 MG IN THE P.M.)
     Route: 048
  2. MYFORTIC [Suspect]
     Active Substance: MYCOPHENOLATE SODIUM
     Indication: LIVER TRANSPLANT
     Dosage: 360 MG, BID
     Route: 048

REACTIONS (2)
  - Gait disturbance [Unknown]
  - Dysstasia [Unknown]
